FAERS Safety Report 9230601 (Version 1)
Quarter: 2013Q2

REPORT INFORMATION
  Report Type: Spontaneous
  Country: US (occurrence: US)
  Receive Date: 20130415
  Receipt Date: 20130415
  Transmission Date: 20140414
  Serious: No
  Sender: FDA-Public Use
  Company Number: US-BAYER-2013-046250

PATIENT
  Age: 51 Year
  Sex: Male
  Weight: 102 kg

DRUGS (5)
  1. ALEVE LIQUID GELS [Suspect]
     Indication: ANALGESIC THERAPY
     Dosage: 2 DF, BID
     Route: 048
     Dates: start: 201303
  2. COMPTON [Concomitant]
  3. AZIELT [Concomitant]
  4. BYSTOLIC [Concomitant]
  5. CARBIDOPA W/LEVODOPA [Concomitant]

REACTIONS (2)
  - Incorrect dose administered [None]
  - Incorrect drug administration duration [None]
